FAERS Safety Report 5694547-8 (Version None)
Quarter: 2008Q2

REPORT INFORMATION
  Report Type: 
  Country: None (occurrence: None)
  Receive Date: 20080404
  Receipt Date: 20080327
  Transmission Date: 20081010
  Serious: Yes (Disabling)
  Sender: FDA-Public Use
  Company Number: BR-AVENTIS-200812777GDDC

PATIENT
  Age: 73 Year
  Sex: Female
  Weight: 58 kg

DRUGS (7)
  1. LANTUS [Suspect]
     Route: 058
     Dates: start: 20080201
  2. OPTIPEN (INSULIN PUMP) [Suspect]
     Route: 058
     Dates: start: 20080201
  3. UNKNOWN DRUG [Concomitant]
     Route: 042
     Dates: start: 20080325
  4. DRUG USED IN DIABETES [Concomitant]
  5. GLUCOVANCE                         /01503701/ [Concomitant]
  6. UNKNOWN DRUG [Concomitant]
     Indication: NAUSEA
  7. UNKNOWN DRUG [Concomitant]
     Indication: HYPERTENSION

REACTIONS (2)
  - FATIGUE [None]
  - HYPERGLYCAEMIA [None]
